FAERS Safety Report 9580928 (Version 1)
Quarter: 2013Q3

REPORT INFORMATION
  Report Type: Spontaneous
  Country: US (occurrence: None)
  Receive Date: 20130916
  Receipt Date: 20130916
  Transmission Date: 20140515
  Serious: Yes (Other)
  Sender: FDA-Public Use
  Company Number: JPI-P-026158

PATIENT
  Age: 20 Year
  Sex: Female

DRUGS (1)
  1. XYREM [Suspect]
     Indication: NARCOLEPSY
     Route: 048

REACTIONS (5)
  - Sleep apnoea syndrome [None]
  - Weight increased [None]
  - Sleep-related eating disorder [None]
  - Somnambulism [None]
  - Memory impairment [None]
